FAERS Safety Report 8926401 (Version 1)
Quarter: 2012Q4

REPORT INFORMATION
  Report Type: 
  Country: IT (occurrence: IT)
  Receive Date: 20121127
  Receipt Date: 20121127
  Transmission Date: 20130627
  Serious: Yes (Hospitalization)
  Sender: FDA-Public Use
  Company Number: IT-GLAXOSMITHKLINE-B0847621A

PATIENT
  Age: 22 Year
  Sex: Female

DRUGS (2)
  1. VENTOLIN [Suspect]
     Indication: ASTHMA
     Dosage: 100MCG per day
     Route: 055
     Dates: start: 20120112, end: 20120112
  2. EUTIROX [Concomitant]

REACTIONS (4)
  - Hypersensitivity [Recovering/Resolving]
  - Oedema peripheral [Recovering/Resolving]
  - Swelling face [Recovering/Resolving]
  - Pruritus generalised [Recovering/Resolving]
